FAERS Safety Report 11558079 (Version 1)
Quarter: 2015Q3

REPORT INFORMATION
  Report Type: Spontaneous
  Country: None (occurrence: None)
  Receive Date: 20150925
  Receipt Date: 20150925
  Transmission Date: 20151125
  Serious: Yes (Hospitalization)
  Sender: FDA-Public Use
  Company Number: None

PATIENT
  Age: 45 Year
  Sex: Female

DRUGS (1)
  1. RIBASPHERE RIBAPAK [Suspect]
     Active Substance: RIBAVIRIN

REACTIONS (5)
  - Mouth swelling [None]
  - Oral pain [None]
  - Drug ineffective [None]
  - Secretion discharge [None]
  - Abscess oral [None]

NARRATIVE: CASE EVENT DATE: 20150724
